FAERS Safety Report 19358099 (Version 1)
Quarter: 2021Q2

REPORT INFORMATION
  Report Type: Spontaneous
  Country: PT (occurrence: PT)
  Receive Date: 20210601
  Receipt Date: 20210601
  Transmission Date: 20210717
  Serious: Yes (Disabling)
  Sender: FDA-Public Use
  Company Number: PT-TEVA-2021-PT-1916611

PATIENT
  Age: 78 Year
  Sex: Male

DRUGS (5)
  1. VIGANTOL [Concomitant]
     Route: 048
  2. SEDOXIL [Concomitant]
     Active Substance: MEXAZOLAM
     Dosage: 0.5 MG
     Route: 048
  3. SERTRALINE [Concomitant]
     Active Substance: SERTRALINE HYDROCHLORIDE
     Route: 048
  4. MIRTAZAPINA PSIDEP 15 MG COMPRIMIDOS REVESTIDOS [Concomitant]
     Route: 048
  5. DONEPEZIL. [Suspect]
     Active Substance: DONEPEZIL
     Indication: MEMORY IMPAIRMENT
     Dosage: 5 MG
     Route: 048
     Dates: start: 202103

REACTIONS (1)
  - Nightmare [Recovered/Resolved]

NARRATIVE: CASE EVENT DATE: 201303
